FAERS Safety Report 17270553 (Version 8)
Quarter: 2020Q4

REPORT INFORMATION
  Report Type: Spontaneous
  Country: CA (occurrence: CA)
  Receive Date: 20200114
  Receipt Date: 20201225
  Transmission Date: 20210113
  Serious: Yes (Other)
  Sender: FDA-Public Use
  Company Number: CA-CELLTRION INC.-2018CA018268

PATIENT

DRUGS (15)
  1. INFLECTRA [Suspect]
     Active Substance: INFLIXIMAB-DYYB
     Dosage: 200 MG, (Q 0, 2, 6 WEEK, THEN EVERY 9 WEEKS)
     Route: 042
     Dates: start: 20191105
  2. FOLIC ACID. [Concomitant]
     Active Substance: FOLIC ACID
     Dosage: UNK
  3. INFLECTRA [Suspect]
     Active Substance: INFLIXIMAB-DYYB
     Dosage: 200 MG, (Q 0, 2, 6 WEEK, THEN EVERY 9 WEEKS)
     Route: 042
     Dates: start: 20200403
  4. INFLECTRA [Suspect]
     Active Substance: INFLIXIMAB-DYYB
     Dosage: 200 MG EVERY 10 WEEKS
     Route: 042
     Dates: start: 20200709
  5. PANTOPRAZOLE [Concomitant]
     Active Substance: PANTOPRAZOLE
     Dosage: UNK
  6. CALCIUM [Concomitant]
     Active Substance: CALCIUM
     Dosage: UNK
  7. INFLECTRA [Suspect]
     Active Substance: INFLIXIMAB-DYYB
     Dosage: 200 MG, (Q 0, 2, 6 WEEK, THEN EVERY 9 WEEKS)
     Route: 042
     Dates: start: 20180821
  8. ACETAMINOPHEN. [Concomitant]
     Active Substance: ACETAMINOPHEN
     Indication: PREMEDICATION
     Dosage: 1 G, UNK
     Route: 048
     Dates: start: 20190226
  9. INFLECTRA [Suspect]
     Active Substance: INFLIXIMAB-DYYB
     Dosage: 200 MG, (Q 0, 2, 6 WEEK, THEN EVERY 9 WEEKS)
     Route: 042
     Dates: start: 20190226
  10. INFLECTRA [Suspect]
     Active Substance: INFLIXIMAB-DYYB
     Dosage: 200 MG EVERY 10 WEEKS
     Route: 042
     Dates: start: 20200609
  11. INFLECTRA [Suspect]
     Active Substance: INFLIXIMAB-DYYB
     Indication: RHEUMATOID ARTHRITIS
     Dosage: 200 MG, (Q 0, 2, 6 WEEK, THEN EVERY 9 WEEKS)
     Route: 042
     Dates: start: 20180419
  12. ACETAMINOPHEN. [Concomitant]
     Active Substance: ACETAMINOPHEN
     Dosage: 100 MG
     Dates: start: 20200821, end: 20200821
  13. INFLECTRA [Suspect]
     Active Substance: INFLIXIMAB-DYYB
     Dosage: 200 MG, (Q 0, 2, 6 WEEK, THEN EVERY 9 WEEKS)
     Route: 042
     Dates: start: 20200128
  14. INFLECTRA [Suspect]
     Active Substance: INFLIXIMAB-DYYB
     Dosage: 200 MG EVERY 10 WEEKS
     Route: 042
     Dates: start: 20200821
  15. METHOTREXATE. [Concomitant]
     Active Substance: METHOTREXATE
     Dosage: UNK

REACTIONS (6)
  - Intentional product use issue [Unknown]
  - Thrombosis [Unknown]
  - Blood pressure increased [Unknown]
  - Off label use [Unknown]
  - Heart rate decreased [Unknown]
  - Inappropriate schedule of product administration [Unknown]

NARRATIVE: CASE EVENT DATE: 20180419
